FAERS Safety Report 6620566-0 (Version None)
Quarter: 2010Q1

REPORT INFORMATION
  Report Type: 
  Country: None (occurrence: None)
  Receive Date: 20100304
  Receipt Date: 20100224
  Transmission Date: 20100710
  Serious: Yes (Death)
  Sender: FDA-Public Use
  Company Number: 1000012199

PATIENT
  Age: 59 Year
  Sex: Male

DRUGS (7)
  1. DILTIAZEM [Suspect]
  2. ALPRAZOLAM [Suspect]
  3. ESOMEPRAZOLE [Suspect]
  4. SOTALOL HCL [Suspect]
  5. SALICYLATE [Suspect]
  6. HYDROMORPHONE HCL [Suspect]
  7. MORPHINE [Suspect]

REACTIONS (4)
  - CARDIAC ARREST [None]
  - COMPLETED SUICIDE [None]
  - MULTIPLE DRUG OVERDOSE [None]
  - RESPIRATORY ARREST [None]
